FAERS Safety Report 19967786 (Version 1)
Quarter: 2021Q4

REPORT INFORMATION
  Report Type: Spontaneous
  Country: US (occurrence: US)
  Receive Date: 20211019
  Receipt Date: 20211019
  Transmission Date: 20220304
  Serious: No
  Sender: FDA-Public Use
  Company Number: US-BAYER-2021A225559

PATIENT
  Sex: Female

DRUGS (2)
  1. MIRALAX [Suspect]
     Active Substance: POLYETHYLENE GLYCOL 3350
     Indication: Constipation
     Dosage: 17 G (MIXED TO 8OZ LIQUID)
     Route: 048
  2. BUTAMIRATE CITRATE [Concomitant]
     Active Substance: BUTAMIRATE CITRATE

REACTIONS (1)
  - Haemorrhoids [Unknown]
